FAERS Safety Report 23387089 (Version 1)
Quarter: 2024Q1

REPORT INFORMATION
  Report Type: Spontaneous
  Country: JP (occurrence: JP)
  Receive Date: 20240110
  Receipt Date: 20240110
  Transmission Date: 20240409
  Serious: Yes (Hospitalization, Other)
  Sender: FDA-Public Use
  Company Number: JP-SA-2024SA007128

PATIENT
  Age: 75 Year
  Sex: Male
  Weight: 53.5 kg

DRUGS (3)
  1. CABAZITAXEL [Suspect]
     Active Substance: CABAZITAXEL
     Indication: Hormone-refractory prostate cancer
     Dosage: 22.5 MG/M2, Q3W
     Route: 042
  2. CLARITHROMYCIN [Suspect]
     Active Substance: CLARITHROMYCIN
     Indication: Osteonecrosis of jaw
     Dosage: 400 MG, QD
  3. PEGFILGRASTIM [Concomitant]
     Active Substance: PEGFILGRASTIM
     Indication: Febrile neutropenia
     Dosage: 3.6 MG
     Route: 058

REACTIONS (6)
  - Decreased appetite [Unknown]
  - Malaise [Unknown]
  - Dehydration [Unknown]
  - Osteonecrosis of jaw [Unknown]
  - Drug interaction [Unknown]
  - General physical health deterioration [Unknown]
